FAERS Safety Report 12095480 (Version 2)
Quarter: 2016Q1

REPORT INFORMATION
  Report Type: Report from Study
  Country: DE (occurrence: DE)
  Receive Date: 20160219
  Receipt Date: 20160317
  Transmission Date: 20160526
  Serious: Yes (Hospitalization, Other)
  Sender: FDA-Public Use
  Company Number: PHHY2016DE021350

PATIENT
  Age: 79 Year
  Sex: Female
  Weight: 51 kg

DRUGS (8)
  1. VIGANTOLETTEN [Concomitant]
     Active Substance: CHOLECALCIFEROL
     Indication: VITAMIN D DEFICIENCY
     Dosage: 1000 IU, QD
     Route: 048
     Dates: start: 201506
  2. NITROLINGUAL [Concomitant]
     Active Substance: NITROGLYCERIN
     Indication: HYPERTENSION
     Dosage: 1 DF (PUFF), PRN
     Route: 048
     Dates: start: 2010
  3. MARCUMAR [Concomitant]
     Active Substance: PHENPROCOUMON
     Indication: ARRHYTHMIA
     Dosage: ACCORDING TO QUICK LAB RESULTS
     Route: 048
     Dates: start: 2008
  4. TELMISARTAN. [Concomitant]
     Active Substance: TELMISARTAN
     Indication: HYPERTENSION
     Dosage: 1 DF, QD
     Route: 048
     Dates: start: 2008
  5. EXELON PATCH [Suspect]
     Active Substance: RIVASTIGMINE
     Dosage: PATCH 15 (CM2),13.3 MG, QD
     Route: 062
     Dates: start: 20151106, end: 20160215
  6. AMLODIPINE [Concomitant]
     Active Substance: AMLODIPINE BESYLATE
     Indication: HYPERTENSION
     Dosage: 2.5 MG, QD
     Route: 048
     Dates: start: 2005
  7. METOHEXAL [Concomitant]
     Active Substance: METOPROLOL SUCCINATE
     Indication: HYPERTENSION
     Dosage: 47.5 MG, TID
     Route: 048
     Dates: start: 2007
  8. EXELON PATCH [Suspect]
     Active Substance: RIVASTIGMINE
     Indication: DEMENTIA ALZHEIMER^S TYPE
     Dosage: PATCH 5 (CM2), 4.6 MG, QD
     Route: 062

REACTIONS (7)
  - Dyspnoea [Recovering/Resolving]
  - Nausea [Recovering/Resolving]
  - Leukoencephalopathy [Not Recovered/Not Resolved]
  - Vomiting [Recovering/Resolving]
  - Oesophageal ulcer [Unknown]
  - Helicobacter gastritis [Recovering/Resolving]
  - Abdominal pain [Not Recovered/Not Resolved]

NARRATIVE: CASE EVENT DATE: 20160205
